FAERS Safety Report 16846534 (Version 2)
Quarter: 2023Q4

REPORT INFORMATION
  Report Type: Spontaneous
  Country: US (occurrence: US)
  Receive Date: 20190924
  Receipt Date: 20231025
  Transmission Date: 20240110
  Serious: No
  Sender: FDA-Public Use
  Company Number: US-AMGEN INC.-USASP2019151712

PATIENT
  Age: 69 Year
  Sex: Female

DRUGS (1)
  1. AIMOVIG [Suspect]
     Active Substance: ERENUMAB-AOOE
     Indication: Migraine
     Dosage: 70 MILLIGRAM, QMO
     Route: 065
     Dates: start: 20190801

REACTIONS (4)
  - Liquid product physical issue [Unknown]
  - Product supply issue [Unknown]
  - Product preparation error [Unknown]
  - Drug dose omission by device [Unknown]

NARRATIVE: CASE EVENT DATE: 20190101
